FAERS Safety Report 5771798-5 (Version None)
Quarter: 2008Q2

REPORT INFORMATION
  Report Type: 
  Country: None (occurrence: None)
  Receive Date: 20080613
  Receipt Date: 20080613
  Transmission Date: 20081010
  Serious: Yes (Other)
  Sender: FDA-Public Use
  Company Number: A0732856A

PATIENT
  Age: 34 Year
  Sex: Female
  Weight: 79 kg

DRUGS (2)
  1. ALLI [Suspect]
     Indication: DRUG USE FOR UNKNOWN INDICATION
     Route: 048
  2. YASMIN [Concomitant]
     Indication: CONTRACEPTION

REACTIONS (3)
  - ADVERSE DRUG REACTION [None]
  - HAEMATOCHEZIA [None]
  - RECTAL HAEMORRHAGE [None]
